FAERS Safety Report 6767390-6 (Version None)
Quarter: 2010Q2

REPORT INFORMATION
  Report Type: 
  Country: None (occurrence: None)
  Receive Date: 20100614
  Receipt Date: 20100604
  Transmission Date: 20101027
  Serious: Yes (Disabling)
  Sender: FDA-Public Use
  Company Number: IT-BAYER-201022586GPV

PATIENT
  Age: 75 Year
  Sex: Female

DRUGS (6)
  1. NEXAVAR [Suspect]
     Indication: RENAL CELL CARCINOMA
     Dosage: TOTAL DAILY DOSE: 800 MG  UNIT DOSE: 200 MG
     Route: 048
     Dates: start: 20091006, end: 20091021
  2. ATENOLOL [Concomitant]
     Indication: HYPERTENSION
     Route: 048
  3. KOLIBRI (TRAMADOL HYDROCHLORIDE) [Concomitant]
     Indication: PAIN
     Route: 048
  4. TORADOL [Concomitant]
     Indication: PAIN
     Route: 048
  5. IBRUPROFEN [Concomitant]
     Indication: PAIN
     Route: 048
  6. ZOMETA [Concomitant]
     Indication: METASTASES TO BONE
     Route: 040

REACTIONS (3)
  - ERYTHEMA [None]
  - FATIGUE [None]
  - HYPERHIDROSIS [None]
